FAERS Safety Report 8604698-3 (Version None)
Quarter: 2012Q3

REPORT INFORMATION
  Report Type: 
  Country: None (occurrence: None)
  Receive Date: 20120820
  Receipt Date: 20120817
  Transmission Date: 20120928
  Serious: Yes (Death, Hospitalization)
  Sender: FDA-Public Use
  Company Number: PHHY2012BR062751

PATIENT
  Age: 90 Year
  Sex: Male

DRUGS (3)
  1. EXELON [Suspect]
     Indication: CONFUSIONAL STATE
     Dosage: 9.5 MG / 24 HRS (18MG/10CM2)
     Route: 062
  2. CARDURA [Concomitant]
     Indication: PROSTATIC DISORDER
     Dosage: 1 TABLET DAILY
     Dates: start: 20020101
  3. HORMONES [Concomitant]
     Indication: PROSTATIC DISORDER
     Dosage: 1 TABLET DAILY

REACTIONS (2)
  - LUNG INFECTION [None]
  - URINARY TRACT INFECTION [None]
